FAERS Safety Report 9639946 (Version 1)
Quarter: 2013Q4

REPORT INFORMATION
  Report Type: Spontaneous
  Country: US (occurrence: None)
  Receive Date: 20131021
  Receipt Date: 20131021
  Transmission Date: 20140711
  Serious: No
  Sender: FDA-Public Use
  Company Number: None

PATIENT
  Sex: 0

DRUGS (12)
  1. AVELOX [Suspect]
     Indication: PRODUCTIVE COUGH
     Route: 048
     Dates: start: 20130920, end: 20130920
  2. AMLODIPINE [Concomitant]
  3. BENICAR [Concomitant]
  4. METAPROLOL [Concomitant]
  5. ASA [Concomitant]
  6. LASIX [Concomitant]
  7. POTASSIUM [Concomitant]
  8. OMEPRAZOLE [Concomitant]
  9. PREDNISONE [Concomitant]
  10. XGEVA [Concomitant]
  11. CAH [Concomitant]
  12. D3 [Concomitant]

REACTIONS (3)
  - Abdominal pain [None]
  - Nausea [None]
  - Decreased appetite [None]
